FAERS Safety Report 9466606 (Version 2)
Quarter: 2013Q3

REPORT INFORMATION
  Report Type: Spontaneous
  Country: NO (occurrence: NO)
  Receive Date: 20130820
  Receipt Date: 20130820
  Transmission Date: 20140515
  Serious: Yes (Other)
  Sender: FDA-Public Use
  Company Number: PHHY2010NO03271

PATIENT
  Age: 28 Year
  Sex: Female

DRUGS (4)
  1. HYDROCHLOROTHIAZIDE [Suspect]
  2. CANDESARTAN CILEXETIL [Suspect]
     Indication: MIGRAINE PROPHYLAXIS
     Dosage: UNK UKN, UNK
  3. ATACAND [Suspect]
     Dosage: 8 MG PER DAY
  4. NORMORIX MITE [Suspect]
     Dosage: 1 DF, QD

REACTIONS (3)
  - Oligohydramnios [Unknown]
  - Premature delivery [Unknown]
  - Exposure during pregnancy [Unknown]
